FAERS Safety Report 8063069-1 (Version None)
Quarter: 2012Q1

REPORT INFORMATION
  Report Type: 
  Country: None (occurrence: None)
  Receive Date: 20120123
  Receipt Date: 20120109
  Transmission Date: 20120608
  Serious: Yes (Life-Threatening)
  Sender: FDA-Public Use
  Company Number: US-MYLANLABS-2012S1000993

PATIENT
  Age: 54 Year
  Sex: Male

DRUGS (5)
  1. PYRIMETHAMINE TAB [Suspect]
     Indication: TOXOPLASMOSIS
     Route: 065
  2. INSULIN [Concomitant]
     Route: 058
  3. CLINDAMYCIN [Suspect]
     Indication: TOXOPLASMOSIS
     Route: 065
  4. DAPSONE [Suspect]
     Indication: ANTIFUNGAL PROPHYLAXIS
     Route: 065
  5. DEXAMETHASONE TAB [Suspect]
     Indication: BRAIN OEDEMA
     Route: 065

REACTIONS (3)
  - PANCYTOPENIA [None]
  - FUNDOSCOPY ABNORMAL [None]
  - ZYGOMYCOSIS [None]
